FAERS Safety Report 9188620 (Version 3)
Quarter: 2012Q4

REPORT INFORMATION
  Report Type: 
  Country: US (occurrence: US)
  Receive Date: 20121213
  Receipt Date: 20121219
  Transmission Date: 20130627
  Serious: Yes (Other)
  Sender: FDA-Public Use
  Company Number: US-RB-047559-12

PATIENT
  Age: 8 Year
  Sex: Female

DRUGS (3)
  1. MUCINEX CHILDREN^S LIQUID [Suspect]
     Indication: PRODUCT USED FOR UNKNOWN INDICATION
     Dosage: Every 4 hours
     Route: 048
     Dates: start: 20121206
  2. MUCINEX CHILDREN^S LIQUID [Suspect]
  3. IBUPROFEN [Concomitant]
     Indication: PRODUCT USED FOR UNKNOWN INDICATION

REACTIONS (1)
  - Lip swelling [Recovered/Resolved]
